FAERS Safety Report 9075145 (Version 1)
Quarter: 2013Q1

REPORT INFORMATION
  Report Type: Report from Study
  Country: US (occurrence: US)
  Receive Date: 20130131
  Receipt Date: 20130131
  Transmission Date: 20140127
  Serious: No
  Sender: FDA-Public Use
  Company Number: US-ABBOTT-12P-163-1006373-00

PATIENT
  Sex: Male
  Weight: 147.55 kg

DRUGS (6)
  1. HUMIRA [Suspect]
     Dates: start: 2008
  2. OXYCONTIN [Concomitant]
     Indication: PAIN
  3. HYDROCODONE (NON-ABBOTT) [Concomitant]
     Indication: PAIN
     Dosage: 7/650 MG
  4. METOPROLOL (NON-ABBOTT) [Concomitant]
     Indication: HYPERTENSION
  5. LIPITOR [Concomitant]
     Indication: BLOOD CHOLESTEROL
  6. DIAZAPAM (NON-ABBOTT) [Concomitant]
     Indication: INSOMNIA
     Dosage: PRN

REACTIONS (1)
  - Pain [Unknown]
